FAERS Safety Report 23720887 (Version 3)
Quarter: 2024Q2

REPORT INFORMATION
  Report Type: Spontaneous
  Country: FR (occurrence: FR)
  Receive Date: 20240409
  Receipt Date: 20240509
  Transmission Date: 20240716
  Serious: No
  Sender: FDA-Public Use
  Company Number: FR-TOLMAR, INC.-24FR047742

PATIENT
  Sex: Female

DRUGS (1)
  1. ELIGARD [Suspect]
     Active Substance: LEUPROLIDE ACETATE
     Indication: Occupational exposure to product
     Dosage: 22.5 MILLIGRAM
     Dates: start: 20240312

REACTIONS (5)
  - Occupational exposure to product [Unknown]
  - Paraesthesia [Recovered/Resolved]
  - Hypoaesthesia [Recovered/Resolved]
  - Intercepted product preparation error [Unknown]
  - Device leakage [Unknown]

NARRATIVE: CASE EVENT DATE: 20240312
